FAERS Safety Report 19508107 (Version 1)
Quarter: 2021Q3

REPORT INFORMATION
  Report Type: Spontaneous
  Country: JP (occurrence: JP)
  Receive Date: 20210708
  Receipt Date: 20210708
  Transmission Date: 20211014
  Serious: Yes (Death)
  Sender: FDA-Public Use
  Company Number: JP-PFIZER INC-2021791619

PATIENT
  Age: 57 Year
  Sex: Female

DRUGS (1)
  1. ANAEMETRO 500MG [Suspect]
     Active Substance: METRONIDAZOLE
     Dosage: UNK
     Dates: start: 201511, end: 201511

REACTIONS (1)
  - Encephalopathy [Fatal]
